FAERS Safety Report 15934178 (Version 2)
Quarter: 2019Q1

REPORT INFORMATION
  Report Type: Spontaneous
  Country: DE (occurrence: DE)
  Receive Date: 20190207
  Receipt Date: 20190208
  Transmission Date: 20190417
  Serious: Yes (Hospitalization, Other)
  Sender: FDA-Public Use
  Company Number: DE-BAYER-2019-024935

PATIENT
  Age: 41 Year
  Sex: Female

DRUGS (4)
  1. ACETYLSALICYLIC ACID({=100 MG) [Suspect]
     Active Substance: ASPIRIN
     Indication: PROPHYLAXIS
     Dosage: STARTED AT 12 WEEK GESTATIONAL WEEK, AND STOPPED AT 24 GESTATIONAL WEEK
  2. NADROPARIN [Suspect]
     Active Substance: NADROPARIN
     Dosage: UNK
  3. NIFEDIPINE. [Suspect]
     Active Substance: NIFEDIPINE
     Indication: BLOOD PRESSURE INCREASED
     Dosage: UNK
  4. NIFEDIPINE. [Suspect]
     Active Substance: NIFEDIPINE
     Indication: PRE-ECLAMPSIA

REACTIONS (9)
  - Maternal exposure during pregnancy [None]
  - Blood pressure increased [None]
  - Drug ineffective [None]
  - Pre-eclampsia [None]
  - Product use in unapproved indication [None]
  - Premature delivery [None]
  - HELLP syndrome [None]
  - Gestational hypertension [None]
  - Intentional product misuse [None]
